FAERS Safety Report 19193299 (Version 1)
Quarter: 2021Q2

REPORT INFORMATION
  Report Type: Spontaneous
  Country: NO (occurrence: NO)
  Receive Date: 20210429
  Receipt Date: 20210429
  Transmission Date: 20210717
  Serious: Yes (Death)
  Sender: FDA-Public Use
  Company Number: NO-009507513-2104NOR006581

PATIENT
  Age: 70 Year
  Sex: Male

DRUGS (4)
  1. METFORMIN [Concomitant]
     Active Substance: METFORMIN HYDROCHLORIDE
     Indication: TYPE 2 DIABETES MELLITUS
     Dosage: 500MG MORNING, 1000MG AT DINNER TIME, AND 1000MG EVENING.
     Route: 048
  2. PEMETREXED DISODIUM [Interacting]
     Active Substance: PEMETREXED DISODIUM
     Indication: NON-SMALL CELL LUNG CANCER
     Dosage: EVERY 3. WEEK: 500 MG/M2, 75% OF THE DOSE GIVEN, LAST DOSE: 12.03 700 MG IV.
     Route: 042
     Dates: start: 20201216, end: 20210312
  3. KEYTRUDA [Suspect]
     Active Substance: PEMBROLIZUMAB
     Indication: NON-SMALL CELL LUNG CANCER
     Dosage: 200 MILLIGRAM, Q3W
     Route: 042
     Dates: start: 20201216, end: 20210312
  4. CARBOPLATIN ACCORD [Interacting]
     Active Substance: CARBOPLATIN
     Indication: NON-SMALL CELL LUNG CANCER
     Dosage: EVERY 3RD. WEEK, AUC= 5MG*MIN/ML, 75% OF THE DOSE, EQUIVALENT TO 390MG 19/FEB/2021. IN TOTAL 4 COURS
     Route: 042
     Dates: start: 20201216, end: 20210219

REACTIONS (1)
  - Interstitial lung disease [Fatal]

NARRATIVE: CASE EVENT DATE: 20210323
